APPROVED DRUG PRODUCT: DEXAMETHASONE ACETATE
Active Ingredient: DEXAMETHASONE ACETATE
Strength: EQ 8MG BASE/ML
Dosage Form/Route: INJECTABLE;INJECTION
Application: A084315 | Product #001
Applicant: WATSON LABORATORIES INC
Approved: Approved Prior to Jan 1, 1982 | RLD: No | RS: No | Type: DISCN